FAERS Safety Report 15405382 (Version 1)
Quarter: 2018Q3

REPORT INFORMATION
  Report Type: Spontaneous
  Country: US (occurrence: US)
  Receive Date: 20180920
  Receipt Date: 20180920
  Transmission Date: 20181010
  Serious: No
  Sender: FDA-Public Use
  Company Number: US-TEVA-811170USA

PATIENT
  Age: 40 Year
  Sex: Male

DRUGS (3)
  1. CLONAZEPAM. [Suspect]
     Active Substance: CLONAZEPAM
     Indication: ANXIETY
     Route: 065
  2. CLONAZEPAM. [Suspect]
     Active Substance: CLONAZEPAM
  3. CLONAZEPAM. [Suspect]
     Active Substance: CLONAZEPAM
     Indication: PANIC DISORDER

REACTIONS (7)
  - Adverse event [Unknown]
  - Feeling abnormal [Unknown]
  - Bedridden [Unknown]
  - Gastrointestinal disorder [Unknown]
  - Malaise [Unknown]
  - Pain [Unknown]
  - Drug ineffective [Unknown]
